FAERS Safety Report 4344418-4 (Version None)
Quarter: 2004Q2

REPORT INFORMATION
  Report Type: 
  Country: None (occurrence: None)
  Receive Date: 20040421
  Receipt Date: 20040421
  Transmission Date: 20050107
  Serious: Yes (Hospitalization)
  Sender: FDA-Public Use
  Company Number: None

PATIENT
  Age: 69 Year
  Sex: Male

DRUGS (3)
  1. NEUMEGA [Suspect]
     Indication: THROMBOCYTOPENIA
     Dosage: 4 MG QD SQ
     Route: 058
     Dates: start: 20040123, end: 20040209
  2. LEVOFLOXACIN [Concomitant]
  3. FERROUS SULFATE TAB [Concomitant]

REACTIONS (1)
  - PULMONARY OEDEMA [None]
